FAERS Safety Report 21156648 (Version 2)
Quarter: 2022Q3

REPORT INFORMATION
  Report Type: Report from Study
  Country: US (occurrence: US)
  Receive Date: 20220801
  Receipt Date: 20220811
  Transmission Date: 20221027
  Serious: Yes (Hospitalization)
  Sender: FDA-Public Use
  Company Number: US-Global Blood Therapeutics Inc-US-GBT-21-01457

PATIENT
  Age: 29 Year
  Sex: Male
  Weight: 68.2 kg

DRUGS (21)
  1. OXBRYTA [Suspect]
     Active Substance: VOXELOTOR
     Indication: Sickle cell disease
     Route: 048
     Dates: start: 20200903
  2. OXBRYTA [Suspect]
     Active Substance: VOXELOTOR
     Indication: Sickle cell disease
     Route: 048
     Dates: start: 20210422
  3. FOLVITE [Concomitant]
     Active Substance: FOLIC ACID
     Indication: Sickle cell disease
     Route: 048
     Dates: start: 20180323
  4. APRESOLINE HYDROCHLORIDE [Concomitant]
     Active Substance: HYDRALAZINE HYDROCHLORIDE
     Indication: Product used for unknown indication
     Route: 048
     Dates: start: 20201109
  5. APRESOLINE HYDROCHLORIDE [Concomitant]
     Active Substance: HYDRALAZINE HYDROCHLORIDE
     Indication: Product used for unknown indication
     Route: 048
     Dates: start: 20210618, end: 20210619
  6. NORVASC [Concomitant]
     Active Substance: AMLODIPINE BESYLATE
     Indication: Product used for unknown indication
     Route: 048
     Dates: start: 20180622
  7. NORVASC [Concomitant]
     Active Substance: AMLODIPINE BESYLATE
     Indication: Product used for unknown indication
     Dosage: TIME INTERVAL: AS NECESSARY
     Dates: start: 20210618, end: 20210619
  8. TENORMIN [Concomitant]
     Active Substance: ATENOLOL
     Indication: Anaemia
     Route: 048
     Dates: start: 20181130
  9. TENORMIN [Concomitant]
     Active Substance: ATENOLOL
     Indication: Anaemia
     Route: 048
     Dates: start: 20210618, end: 20210619
  10. ROCALTROL [Concomitant]
     Active Substance: CALCITRIOL
     Indication: Renal disorder
     Route: 048
     Dates: start: 20200228
  11. ROCALTROL [Concomitant]
     Active Substance: CALCITRIOL
     Indication: Renal disorder
     Route: 048
     Dates: start: 20210618, end: 20210619
  12. PHOSLO [Concomitant]
     Active Substance: CALCIUM ACETATE
     Indication: Sickle cell disease
     Dosage: TIME INTERVAL: 0.33333333 DAYS
     Route: 048
     Dates: start: 20200228
  13. PHOSLO [Concomitant]
     Active Substance: CALCIUM ACETATE
     Indication: Sickle cell disease
     Dosage: TIME INTERVAL: 0.33333333 DAYS
     Route: 048
     Dates: start: 20210618, end: 20210618
  14. VITAMIN D3 [Concomitant]
     Active Substance: CHOLECALCIFEROL
     Indication: Vitamin D deficiency
     Route: 048
     Dates: start: 20200520
  15. CELEXA [Concomitant]
     Active Substance: CITALOPRAM HYDROBROMIDE
     Indication: Pain
     Route: 048
     Dates: start: 20181130
  16. CARDURA [Concomitant]
     Active Substance: DOXAZOSIN MESYLATE
     Indication: Hypertension
     Route: 048
     Dates: start: 20200228
  17. CARDURA [Concomitant]
     Active Substance: DOXAZOSIN MESYLATE
     Indication: Hypertension
     Route: 048
     Dates: start: 20210618, end: 20210619
  18. HUMAN RED BLOOD CELL [Concomitant]
     Active Substance: HUMAN RED BLOOD CELL
     Indication: Sickle cell disease
     Dosage: NOT PROVIDED
  19. BENADRYL [Concomitant]
     Active Substance: DIPHENHYDRAMINE HYDROCHLORIDE
     Indication: Sickle cell anaemia with crisis
     Route: 048
     Dates: start: 20210618, end: 20210618
  20. NARCAN [Concomitant]
     Active Substance: NALOXONE HYDROCHLORIDE
     Indication: Drug abuse
     Dosage: TIME INTERVAL: AS NECESSARY
     Dates: start: 20210618, end: 20210618
  21. NARCAN [Concomitant]
     Active Substance: NALOXONE HYDROCHLORIDE
     Indication: Drug abuse
     Dosage: TIME INTERVAL: AS NECESSARY
     Dates: start: 20210618, end: 20210619

REACTIONS (5)
  - Sickle cell anaemia with crisis [Recovered/Resolved]
  - Essential hypertension [Recovered/Resolved]
  - Anaemia [Recovered/Resolved]
  - Chronic kidney disease [Recovered/Resolved]
  - Anaemia [Recovered/Resolved]

NARRATIVE: CASE EVENT DATE: 20200903
